FAERS Safety Report 4301379-1 (Version None)
Quarter: 2004Q1

REPORT INFORMATION
  Report Type: 
  Country: None (occurrence: None)
  Receive Date: 20040223
  Receipt Date: 20030916
  Transmission Date: 20041129
  Serious: Yes (Other)
  Sender: FDA-Public Use
  Company Number: US-GLAXOSMITHKLINE-A0426342A

PATIENT
  Age: 86 Year
  Sex: Male
  Weight: 63.2 kg

DRUGS (5)
  1. NAVELBINE [Suspect]
     Indication: PROSTATE CANCER
     Dosage: 44MG WEEKLY
     Route: 042
     Dates: start: 20030818, end: 20030825
  2. PAIN MEDICATION [Concomitant]
  3. ARANESP [Concomitant]
  4. ZOMETA [Concomitant]
  5. KYTRIL [Concomitant]
     Dosage: 1MG AS DIRECTED
     Route: 042

REACTIONS (2)
  - NAUSEA [None]
  - VOMITING [None]
